FAERS Safety Report 17010568 (Version 1)
Quarter: 2019Q4

REPORT INFORMATION
  Report Type: Report from Study
  Country: US (occurrence: US)
  Receive Date: 20191108
  Receipt Date: 20191108
  Transmission Date: 20200122
  Serious: Yes (Other)
  Sender: FDA-Public Use
  Company Number: US-TEVA-2019-US-1132801

PATIENT
  Sex: Female

DRUGS (2)
  1. COPAXONE [Suspect]
     Active Substance: GLATIRAMER ACETATE
  2. COPAXONE [Suspect]
     Active Substance: GLATIRAMER ACETATE

REACTIONS (7)
  - Suicidal ideation [Recovered/Resolved]
  - Loss of consciousness [Unknown]
  - Chest discomfort [Unknown]
  - Abortion spontaneous [Unknown]
  - Chills [Unknown]
  - Injection site pain [Unknown]
  - Maternal exposure during pregnancy [Unknown]
